FAERS Safety Report 5758985-7 (Version None)
Quarter: 2008Q2

REPORT INFORMATION
  Report Type: 
  Country: None (occurrence: None)
  Receive Date: 20080530
  Receipt Date: 20080515
  Transmission Date: 20081010
  Serious: Yes (Hospitalization)
  Sender: FDA-Public Use
  Company Number: 028062

PATIENT
  Age: 7 Year
  Sex: Female

DRUGS (1)
  1. CLARAVIS [Suspect]
     Indication: NEUROBLASTOMA
     Dosage: 120 MG, BID,; 10 MG, BID, ORAL
     Route: 048

REACTIONS (11)
  - ABDOMINAL DISCOMFORT [None]
  - ARTHRALGIA [None]
  - BENIGN INTRACRANIAL HYPERTENSION [None]
  - BLOOD ALKALINE PHOSPHATASE INCREASED [None]
  - BLOOD TRIGLYCERIDES INCREASED [None]
  - CONVULSION [None]
  - HYPERCALCAEMIA [None]
  - HYPERTENSION [None]
  - RASH [None]
  - RENAL FAILURE [None]
  - SKIN EXFOLIATION [None]
